FAERS Safety Report 7901926 (Version 3)
Quarter: 2014Q1

REPORT INFORMATION
  Report Type: Spontaneous
  Country: US (occurrence: US)
  Receive Date: 20110418
  Receipt Date: 20140203
  Transmission Date: 20141002
  Serious: Yes (Other)
  Sender: FDA-Public Use
  Company Number: US-JNJFOC-20110403397

PATIENT
  Sex: Female
  Weight: 69.85 kg

DRUGS (13)
  1. DURAGESIC [Suspect]
     Indication: PAIN
     Route: 062
  2. UNSPECIFIED FENTANYL TRANSDERMAL SYSTEM [Suspect]
     Indication: PAIN
     Route: 062
  3. UNSPECIFIED FENTANYL TRANSDERMAL SYSTEM [Suspect]
     Indication: PAIN
     Route: 062
     Dates: start: 2011
  4. DURAGESIC [Suspect]
     Indication: PAIN
     Route: 062
  5. TRAMADOL [Concomitant]
     Indication: PAIN
     Route: 048
  6. NARCOTIC ANALGESICS, NOS [Concomitant]
     Indication: PAIN
     Dosage: 20/650 MG/TABLET/10/325MG/2 AS NEEDED
     Route: 048
  7. CYCLOBENZAPRINE [Concomitant]
     Indication: MUSCLE SPASMS
     Route: 048
  8. CYCLOBENZAPRINE [Concomitant]
     Indication: NEUROPATHY PERIPHERAL
     Route: 048
  9. DIAZEPAM [Concomitant]
     Indication: MUSCLE SPASMS
     Route: 048
  10. DIAZEPAM [Concomitant]
     Indication: NEUROPATHY PERIPHERAL
     Route: 048
  11. LYRICA [Concomitant]
     Indication: PROCEDURAL PAIN
     Route: 048
     Dates: start: 2008
  12. AMITRIPTYLINE [Concomitant]
     Indication: POOR QUALITY SLEEP
     Route: 065
  13. TRAZODONE [Concomitant]
     Indication: POOR QUALITY SLEEP
     Route: 048

REACTIONS (10)
  - Lip and/or oral cavity cancer [Not Recovered/Not Resolved]
  - Throat cancer [Unknown]
  - Neoplasm malignant [Unknown]
  - Product quality issue [Unknown]
  - Confusional state [Recovered/Resolved]
  - Therapeutic response unexpected with drug substitution [Recovered/Resolved]
  - Muscle spasms [Recovered/Resolved]
  - Hypokinesia [Recovered/Resolved]
  - Cervical myelopathy [Not Recovered/Not Resolved]
  - Adverse event [Unknown]
